FAERS Safety Report 20245372 (Version 4)
Quarter: 2022Q1

REPORT INFORMATION
  Report Type: Report from Study
  Country: US (occurrence: US)
  Receive Date: 20211229
  Receipt Date: 20220314
  Transmission Date: 20220423
  Serious: Yes (Hospitalization, Other)
  Sender: FDA-Public Use
  Company Number: US-BEH-2021137610

PATIENT
  Age: 72 Year
  Sex: Female
  Weight: 75.737 kg

DRUGS (9)
  1. HIZENTRA [Suspect]
     Active Substance: HUMAN IMMUNOGLOBULIN G
     Indication: Chronic inflammatory demyelinating polyradiculoneuropathy
     Dosage: 16 GRAM, QW
     Route: 065
     Dates: start: 20210730
  2. HIZENTRA [Suspect]
     Active Substance: HUMAN IMMUNOGLOBULIN G
     Dosage: 18 GRAM, QW
     Route: 058
     Dates: start: 202110
  3. HIZENTRA [Suspect]
     Active Substance: HUMAN IMMUNOGLOBULIN G
     Dosage: 9 GRAM, BIW (EVERY FRIDAY AND SATURDAY)
     Route: 058
     Dates: start: 2021
  4. HIZENTRA [Suspect]
     Active Substance: HUMAN IMMUNOGLOBULIN G
     Dosage: 18 GRAM, TIW
     Route: 058
     Dates: start: 20211021, end: 20220221
  5. HIZENTRA [Suspect]
     Active Substance: HUMAN IMMUNOGLOBULIN G
     Dosage: UNK
     Route: 058
     Dates: start: 202202
  6. BENADRYL [Concomitant]
     Active Substance: DIPHENHYDRAMINE HYDROCHLORIDE
     Indication: Premedication
     Dosage: 375 MILLIGRAM
     Dates: start: 20211022
  7. BENADRYL [Concomitant]
     Active Substance: DIPHENHYDRAMINE HYDROCHLORIDE
     Dosage: 25 MG, EVERY 6 HOURS
     Route: 065
  8. ALLEGRA [Concomitant]
     Active Substance: FEXOFENADINE HYDROCHLORIDE
     Indication: Premedication
     Dosage: 30 MILLIGRAM
     Route: 065
  9. ASPIRIN [Concomitant]
     Active Substance: ASPIRIN
     Indication: Premedication
     Dosage: 325 MILLIGRAM
     Route: 065

REACTIONS (25)
  - Headache [Recovered/Resolved]
  - Neck pain [Recovered/Resolved]
  - Photophobia [Recovered/Resolved]
  - Hypoaesthesia [Unknown]
  - Pain [Recovered/Resolved]
  - Fatigue [Recovered/Resolved]
  - Chronic inflammatory demyelinating polyradiculoneuropathy [Not Recovered/Not Resolved]
  - Gait disturbance [Not Recovered/Not Resolved]
  - Balance disorder [Not Recovered/Not Resolved]
  - Nasopharyngitis [Unknown]
  - Hypoaesthesia [Not Recovered/Not Resolved]
  - Neck pain [Unknown]
  - Headache [Recovering/Resolving]
  - Fatigue [Recovering/Resolving]
  - Eyelid ptosis [Recovering/Resolving]
  - Paraesthesia [Recovering/Resolving]
  - Hypoaesthesia [Recovering/Resolving]
  - Tachycardia [Unknown]
  - Eyelid ptosis [Recovering/Resolving]
  - Dysuria [Unknown]
  - Asthenia [Unknown]
  - Nausea [Unknown]
  - Back pain [Unknown]
  - Head discomfort [Unknown]
  - Photophobia [Unknown]

NARRATIVE: CASE EVENT DATE: 20210801
